FAERS Safety Report 9946613 (Version 1)
Quarter: 2014Q1

REPORT INFORMATION
  Report Type: Spontaneous
  Country: US (occurrence: US)
  Receive Date: 20140303
  Receipt Date: 20140303
  Transmission Date: 20141002
  Serious: No
  Sender: FDA-Public Use
  Company Number: US-ABBVIE-13P-163-1062972-00

PATIENT
  Age: 30 Year
  Sex: Male

DRUGS (3)
  1. HUMIRA [Suspect]
     Indication: CROHN^S DISEASE
     Route: 058
     Dates: start: 20130201, end: 20130201
  2. HUMIRA [Suspect]
     Route: 058
     Dates: start: 20130215, end: 20130215
  3. HUMIRA [Suspect]
     Route: 058
     Dates: start: 20130301

REACTIONS (1)
  - Rash [Unknown]
